FAERS Safety Report 24543736 (Version 6)
Quarter: 2025Q1

REPORT INFORMATION
  Report Type: Report from Study
  Country: CA (occurrence: CA)
  Receive Date: 20241024
  Receipt Date: 20250207
  Transmission Date: 20250409
  Serious: Yes (Disabling, Other)
  Sender: BIOCON
  Company Number: CA-BIOCON BIOLOGICS LIMITED-2023M1104840

PATIENT

DRUGS (4)
  1. HULIO [Suspect]
     Active Substance: ADALIMUMAB-FKJP
     Indication: Crohn^s disease
     Route: 058
     Dates: start: 20220829
  2. HULIO [Suspect]
     Active Substance: ADALIMUMAB-FKJP
     Route: 058
     Dates: start: 20240829
  3. HULIO [Suspect]
     Active Substance: ADALIMUMAB-FKJP
     Route: 058
     Dates: start: 20220829
  4. AZATHIOPRINE [Concomitant]
     Active Substance: AZATHIOPRINE
     Indication: Product used for unknown indication
     Route: 065

REACTIONS (9)
  - Arteriovenous fistula site haemorrhage [Unknown]
  - Crohn^s disease [Unknown]
  - Nephrolithiasis [Unknown]
  - Loss of personal independence in daily activities [Unknown]
  - Diarrhoea [Unknown]
  - Fistula [Unknown]
  - Arteriovenous fistula site complication [Unknown]
  - Inflammation [Unknown]
  - Off label use [Unknown]
